FAERS Safety Report 19263900 (Version 1)
Quarter: 2021Q2

REPORT INFORMATION
  Report Type: Spontaneous
  Country: US (occurrence: US)
  Receive Date: 20210515
  Receipt Date: 20210515
  Transmission Date: 20210717
  Serious: Yes (Hospitalization)
  Sender: FDA-Public Use
  Company Number: None

PATIENT
  Sex: Female

DRUGS (3)
  1. TOBRAMYCIN 300MG/5ML TOBI GEQ [Suspect]
     Active Substance: TOBRAMYCIN
     Indication: ACUTE RESPIRATORY FAILURE
     Route: 048
     Dates: start: 20200305
  2. SINGULAIR [Concomitant]
     Active Substance: MONTELUKAST SODIUM
  3. SILDENAFIL 10MG/ML SUSP [Suspect]
     Active Substance: SILDENAFIL
     Indication: ACUTE RESPIRATORY FAILURE
     Dosage: ?          OTHER ROUTE:IN GASTROSTOMY TUBE?
     Dates: start: 20190713

REACTIONS (1)
  - Parasitic gastroenteritis [None]
